FAERS Safety Report 12445761 (Version 1)
Quarter: 2016Q2

REPORT INFORMATION
  Report Type: Spontaneous
  Country: US (occurrence: US)
  Receive Date: 20160608
  Receipt Date: 20160608
  Transmission Date: 20160815
  Serious: No
  Sender: FDA-Public Use
  Company Number: US-JNJFOC-20160512116

PATIENT
  Age: 73 Year
  Sex: Female
  Weight: 50.8 kg

DRUGS (1)
  1. TYLENOL REGULAR STRENGTH [Suspect]
     Active Substance: ACETAMINOPHEN
     Indication: TOOTHACHE
     Dosage: 2 TABLETS, EVERY HOURS X 2
     Route: 048
     Dates: start: 20160510, end: 20160510

REACTIONS (2)
  - Skin discolouration [Recovering/Resolving]
  - Drug hypersensitivity [Recovering/Resolving]

NARRATIVE: CASE EVENT DATE: 20160511
